FAERS Safety Report 10163059 (Version 1)
Quarter: 2014Q2

REPORT INFORMATION
  Report Type: Spontaneous
  Country: GB (occurrence: GB)
  Receive Date: 20140509
  Receipt Date: 20140509
  Transmission Date: 20141212
  Serious: Yes (Other)
  Sender: FDA-Public Use
  Company Number: GB-ASTRAZENECA-2014SE30182

PATIENT
  Age: 23 Year
  Sex: Female
  Weight: 100 kg

DRUGS (3)
  1. SEROQUEL XL [Suspect]
     Indication: BIPOLAR DISORDER
     Route: 048
     Dates: start: 20140309, end: 20140421
  2. SEROQUEL XL [Suspect]
     Indication: DEPRESSED MOOD
     Route: 048
     Dates: start: 20140309, end: 20140421
  3. VENLAFAXINE [Concomitant]

REACTIONS (3)
  - Skin reaction [Recovering/Resolving]
  - Hypersomnia [Recovered/Resolved]
  - Weight increased [Not Recovered/Not Resolved]
